FAERS Safety Report 6685878-3 (Version None)
Quarter: 2010Q2

REPORT INFORMATION
  Report Type: 
  Country: None (occurrence: None)
  Receive Date: 20100419
  Receipt Date: 20100412
  Transmission Date: 20101027
  Serious: Yes (Hospitalization, Other)
  Sender: FDA-Public Use
  Company Number: US-ASTRAZENECA-2008UW27092

PATIENT
  Age: 13266 Day
  Sex: Male
  Weight: 112 kg

DRUGS (29)
  1. SEROQUEL [Suspect]
     Indication: BIPOLAR DISORDER
     Dosage: 100MG-200MG AT NIGHT
     Route: 048
     Dates: start: 19990119
  2. SEROQUEL [Suspect]
     Indication: DEPRESSION
     Dosage: 100MG-200MG AT NIGHT
     Route: 048
     Dates: start: 19990119
  3. SEROQUEL [Suspect]
     Indication: MOOD SWINGS
     Dosage: 100MG-200MG AT NIGHT
     Route: 048
     Dates: start: 19990119
  4. SEROQUEL [Suspect]
     Dosage: 25 MG - 1600 MG
     Route: 048
     Dates: start: 20010329
  5. SEROQUEL [Suspect]
     Dosage: 25 MG - 1600 MG
     Route: 048
     Dates: start: 20010329
  6. SEROQUEL [Suspect]
     Dosage: 25 MG - 1600 MG
     Route: 048
     Dates: start: 20010329
  7. SEROQUEL [Suspect]
     Route: 048
  8. SEROQUEL [Suspect]
     Route: 048
  9. SEROQUEL [Suspect]
     Route: 048
  10. ZYPREXA [Concomitant]
     Dates: start: 19990101
  11. ZYPREXA [Concomitant]
  12. ZYPREXA [Concomitant]
  13. WELLBUTRIN [Concomitant]
     Dates: start: 19990101
  14. WELLBUTRIN [Concomitant]
  15. LITHIUM [Concomitant]
     Indication: BIPOLAR DISORDER
     Dosage: 300 MG - 1200 MG
     Route: 048
     Dates: start: 19990119
  16. LITHIUM [Concomitant]
     Indication: MOOD SWINGS
     Dosage: 300 MG - 1200 MG
     Route: 048
     Dates: start: 19990119
  17. LITHIUM [Concomitant]
  18. LITHIUM [Concomitant]
  19. PROZAC [Concomitant]
     Dates: start: 20001229
  20. ESKALITH/LITHIUM CARBONATE/LITHOBID [Concomitant]
     Dosage: 300 MG - 1200 MG
     Dates: start: 19990101
  21. DEPAKOTE [Concomitant]
     Indication: BIPOLAR DISORDER
     Dosage: 500 MG - 1500 MG
     Route: 048
     Dates: start: 19990301
  22. DEPAKOTE [Concomitant]
     Indication: MOOD SWINGS
     Dosage: 500 MG - 1500 MG
     Route: 048
     Dates: start: 19990301
  23. DEPAKOTE [Concomitant]
  24. DEPAKOTE [Concomitant]
  25. FLUOXETINE [Concomitant]
  26. ZOLOFT [Concomitant]
     Indication: BIPOLAR DISORDER
     Dosage: 25 MG - 100 MG
     Route: 048
     Dates: start: 19990119
  27. ZOLOFT [Concomitant]
     Indication: MOOD SWINGS
     Dosage: 25 MG - 100 MG
     Route: 048
     Dates: start: 19990119
  28. ZOLOFT [Concomitant]
  29. ZOLOFT [Concomitant]

REACTIONS (7)
  - ATRIOVENTRICULAR BLOCK [None]
  - CHEST PAIN [None]
  - CORONARY ARTERY DISEASE [None]
  - CORONARY ARTERY OCCLUSION [None]
  - GASTROOESOPHAGEAL REFLUX DISEASE [None]
  - OBESITY [None]
  - TYPE 2 DIABETES MELLITUS [None]
